FAERS Safety Report 14939166 (Version 1)
Quarter: 2018Q2

REPORT INFORMATION
  Report Type: Spontaneous
  Country: US (occurrence: US)
  Receive Date: 20180525
  Receipt Date: 20180525
  Transmission Date: 20180711
  Serious: No
  Sender: FDA-Public Use
  Company Number: US-SUNOVION-2018SUN002013

PATIENT
  Sex: Male

DRUGS (3)
  1. BUDESONIDE. [Concomitant]
     Active Substance: BUDESONIDE
     Dosage: UNK
  2. BROVANA [Concomitant]
     Active Substance: ARFORMOTEROL TARTRATE
     Dosage: UNK
  3. LONHALA MAGNAIR [Suspect]
     Active Substance: GLYCOPYRROLATE
     Dosage: UNK, REGIMEN #1
     Route: 055

REACTIONS (2)
  - Drug administration error [Unknown]
  - Dyspnoea [Unknown]
